FAERS Safety Report 10137239 (Version 1)
Quarter: 2014Q2

REPORT INFORMATION
  Report Type: Report from Study
  Country: US (occurrence: US)
  Receive Date: 20140429
  Receipt Date: 20140429
  Transmission Date: 20141212
  Serious: No
  Sender: FDA-Public Use
  Company Number: US-ABBVIE-14P-163-1212247-00

PATIENT
  Age: 66 Year
  Sex: Male
  Weight: 108.96 kg

DRUGS (7)
  1. ANDROGEL [Suspect]
     Indication: BLOOD TESTOSTERONE DECREASED
     Dosage: 4 PUMPS PER DAY
     Route: 061
     Dates: start: 2012, end: 2013
  2. ANDROGEL [Suspect]
     Dosage: 2 PUMPS PER DAY
     Dates: start: 2013
  3. ANDROGEL [Suspect]
     Indication: BLOOD TESTOSTERONE DECREASED
     Dates: start: 2004, end: 2012
  4. MULTIVITAMIN [Concomitant]
     Indication: PRODUCT USED FOR UNKNOWN INDICATION
  5. RED YEAST RICE [Concomitant]
     Indication: PRODUCT USED FOR UNKNOWN INDICATION
  6. FISH OIL [Concomitant]
     Indication: PRODUCT USED FOR UNKNOWN INDICATION
  7. BISOPROLOL [Concomitant]
     Indication: HYPERTENSION

REACTIONS (5)
  - Myalgia [Not Recovered/Not Resolved]
  - Blood testosterone increased [Recovered/Resolved]
  - Red blood cell count increased [Recovered/Resolved]
  - Rash papular [Not Recovered/Not Resolved]
  - Application site pain [Not Recovered/Not Resolved]
